FAERS Safety Report 9500075 (Version 3)
Quarter: 2013Q4

REPORT INFORMATION
  Report Type: Spontaneous
  Country: US (occurrence: None)
  Receive Date: 20130107
  Receipt Date: 20131226
  Transmission Date: 20140711
  Serious: Yes (Other)
  Sender: FDA-Public Use
  Company Number: PHEH2012US021903

PATIENT
  Age: 56 Year
  Sex: Female
  Weight: 110.7 kg

DRUGS (1)
  1. GILENYA [Suspect]
     Indication: MULTIPLE SCLEROSIS
     Route: 048
     Dates: start: 20121102

REACTIONS (9)
  - Oropharyngeal pain [None]
  - Somnolence [None]
  - Pain in extremity [None]
  - Ear pain [None]
  - Erythema [None]
  - Headache [None]
  - Back pain [None]
  - Pruritus [None]
  - Malaise [None]
